FAERS Safety Report 18855894 (Version 2)
Quarter: 2021Q2

REPORT INFORMATION
  Report Type: Spontaneous
  Country: US (occurrence: US)
  Receive Date: 20210206
  Receipt Date: 20210430
  Transmission Date: 20210717
  Serious: Yes (Other)
  Sender: FDA-Public Use
  Company Number: US-TEVA-2021-US-1875450

PATIENT
  Age: 54 Year
  Sex: Female
  Weight: 122.02 kg

DRUGS (14)
  1. XANAX [Concomitant]
     Active Substance: ALPRAZOLAM
     Route: 065
  2. VISTARIL [Concomitant]
     Active Substance: HYDROXYZINE PAMOATE
     Route: 065
  3. LISINOPRIL. [Concomitant]
     Active Substance: LISINOPRIL
     Route: 065
  4. WARFARIN [Suspect]
     Active Substance: WARFARIN
     Indication: PULMONARY EMBOLISM
     Route: 065
     Dates: start: 2013, end: 2014
  5. OXYGEN. [Concomitant]
     Active Substance: OXYGEN
     Dosage: PRN
     Route: 065
  6. GABAPENTIN. [Concomitant]
     Active Substance: GABAPENTIN
     Route: 065
  7. XARELTO [Concomitant]
     Active Substance: RIVAROXABAN
     Route: 065
  8. FLONASE [Concomitant]
     Active Substance: FLUTICASONE PROPIONATE
     Route: 065
  9. TRAMADOL. [Concomitant]
     Active Substance: TRAMADOL
     Route: 065
  10. TIZANIDINE. [Concomitant]
     Active Substance: TIZANIDINE
     Route: 065
  11. ZOLOFT [Concomitant]
     Active Substance: SERTRALINE HYDROCHLORIDE
     Route: 065
  12. NORVASC [Concomitant]
     Active Substance: AMLODIPINE BESYLATE
     Route: 065
  13. SPIRIVA [Concomitant]
     Active Substance: TIOTROPIUM BROMIDE MONOHYDRATE
     Route: 065
  14. LEVEMIR [Concomitant]
     Active Substance: INSULIN DETEMIR
     Route: 065

REACTIONS (11)
  - Fibromyalgia [Unknown]
  - Haemorrhage [Unknown]
  - Rash [Unknown]
  - Sensitive skin [Unknown]
  - Skin discolouration [Unknown]
  - Burning sensation [Unknown]
  - Toxicity to various agents [Unknown]
  - Swelling [Unknown]
  - Cutaneous vasculitis [Unknown]
  - Vasculitis [Unknown]
  - Alopecia [Unknown]
